FAERS Safety Report 10367083 (Version 3)
Quarter: 2014Q4

REPORT INFORMATION
  Report Type: Spontaneous
  Country: JP (occurrence: JP)
  Receive Date: 20140807
  Receipt Date: 20141001
  Transmission Date: 20150528
  Serious: Yes (Hospitalization, Disabling, Other)
  Sender: FDA-Public Use
  Company Number: JP-AMGEN-JPNSP2013091287

PATIENT
  Age: 44 Year
  Sex: Female
  Weight: 55.9 kg

DRUGS (3)
  1. ENBREL [Suspect]
     Active Substance: ETANERCEPT
     Dosage: 50 MG, WEEKLY
     Route: 058
     Dates: start: 20130226, end: 20130226
  2. METOLATE [Concomitant]
     Active Substance: METHOTREXATE
     Indication: RHEUMATOID ARTHRITIS
     Dosage: 10 MG, WEEKLY
     Route: 048
     Dates: start: 2006
  3. ENBREL [Suspect]
     Active Substance: ETANERCEPT
     Indication: RHEUMATOID ARTHRITIS
     Dosage: 25 MG, WEEKLY
     Route: 058
     Dates: start: 2007, end: 20130225

REACTIONS (16)
  - Rheumatoid arthritis [Unknown]
  - Stress [Unknown]
  - Arthropathy [Unknown]
  - Nausea [Unknown]
  - Fall [Unknown]
  - Sjogren^s syndrome [Unknown]
  - Gastrointestinal disorder [Unknown]
  - Pyrexia [Unknown]
  - Neuropathy peripheral [Recovered/Resolved with Sequelae]
  - White blood cell count decreased [Recovered/Resolved]
  - Dry eye [Unknown]
  - Malaise [Unknown]
  - Feeling abnormal [Unknown]
  - Sensory loss [Unknown]
  - Ataxia [Recovered/Resolved with Sequelae]
  - Hypoaesthesia [Unknown]

NARRATIVE: CASE EVENT DATE: 2011
